FAERS Safety Report 5889495-4 (Version None)
Quarter: 2008Q3

REPORT INFORMATION
  Report Type: 
  Country: None (occurrence: None)
  Receive Date: 20080919
  Receipt Date: 20080905
  Transmission Date: 20090109
  Serious: Yes (Other)
  Sender: FDA-Public Use
  Company Number: GB-ELI_LILLY_AND_COMPANY-GB200804006635

PATIENT
  Sex: Male
  Weight: 79 kg

DRUGS (1)
  1. CIALIS [Suspect]
     Indication: ERECTILE DYSFUNCTION
     Dosage: 10 MG, AS NEEDED
     Route: 048
     Dates: start: 20070313

REACTIONS (6)
  - BLOOD CHOLESTEROL INCREASED [None]
  - DYSPNOEA [None]
  - RIB DEFORMITY [None]
  - SUPRAVENTRICULAR EXTRASYSTOLES [None]
  - THIRST [None]
  - VENTRICULAR EXTRASYSTOLES [None]
